FAERS Safety Report 5688146-1 (Version None)
Quarter: 2008Q1

REPORT INFORMATION
  Report Type: 
  Country: None (occurrence: None)
  Receive Date: 20080327
  Receipt Date: 20080311
  Transmission Date: 20080703
  Serious: Yes (Other)
  Sender: FDA-Public Use
  Company Number: 2008JP001131

PATIENT
  Age: 76 Year
  Sex: Female

DRUGS (6)
  1. PROGRAF [Suspect]
     Indication: RHEUMATOID ARTHRITIS
     Dosage: 1.5 MG, UID/QD, ORAL
     Route: 048
  2. PREDISOLONE (PREDNISOLONE) [Concomitant]
  3. MUCOSTA (REBAMIPIDE) [Concomitant]
  4. METHYCOBAL (MECOBALAMIN) [Concomitant]
  5. EVISTA [Concomitant]
  6. FERROMIA (FERROUS CITRATE) [Concomitant]

REACTIONS (4)
  - ABDOMINAL DISTENSION [None]
  - LOCAL SWELLING [None]
  - LYMPHOMA [None]
  - PYREXIA [None]
